FAERS Safety Report 19013569 (Version 1)
Quarter: 2021Q1

REPORT INFORMATION
  Report Type: Spontaneous
  Country: CN (occurrence: CN)
  Receive Date: 20210315
  Receipt Date: 20210315
  Transmission Date: 20210420
  Serious: Yes (Other)
  Sender: FDA-Public Use
  Company Number: CN-ORGANON-O2103CHN001399

PATIENT
  Sex: Male
  Weight: 50 kg

DRUGS (2)
  1. LIDOCAINE HYDROCHLORIDE. [Suspect]
     Active Substance: LIDOCAINE HYDROCHLORIDE
     Indication: ARTHRALGIA
     Dosage: 0.1 GRAM, QD
     Route: 014
     Dates: start: 20210301, end: 20210301
  2. DIPROSPAN [Suspect]
     Active Substance: BETAMETHASONE DIPROPIONATE\BETAMETHASONE SODIUM PHOSPHATE
     Indication: ARTHRALGIA
     Dosage: 1ML, QD, INJECTION
     Route: 014
     Dates: start: 20210301, end: 20210301

REACTIONS (1)
  - Epilepsy [Recovered/Resolved]

NARRATIVE: CASE EVENT DATE: 20210301
